FAERS Safety Report 6905516-1 (Version None)
Quarter: 2010Q3

REPORT INFORMATION
  Report Type: 
  Country: None (occurrence: None)
  Receive Date: 20100804
  Receipt Date: 20100723
  Transmission Date: 20110219
  Serious: Yes (Hospitalization)
  Sender: FDA-Public Use
  Company Number: JP-PFIZER INC-2010081365

PATIENT
  Age: 88 Year
  Sex: Female
  Weight: 46 kg

DRUGS (6)
  1. ZITHROMAC SR [Suspect]
     Indication: RESPIRATORY TRACT INFECTION
     Dosage: 2 G, SINGLE
     Route: 048
     Dates: start: 20100616
  2. LANIRAPID [Concomitant]
     Indication: CARDIAC FAILURE
     Dosage: 0.1 MG, 1X/DAY
     Route: 048
     Dates: start: 20100610, end: 20100623
  3. FUROSEMID [Concomitant]
     Indication: CARDIAC FAILURE
     Dosage: 20 MG, 1X/DAY
     Route: 048
     Dates: start: 20100610
  4. ALDACTONE [Concomitant]
     Indication: CARDIAC FAILURE
     Dosage: 25 MG, 1X/DAY
     Route: 048
     Dates: start: 20100610
  5. ENALAPRIL MALEATE [Concomitant]
     Indication: HYPERTENSION
     Dosage: 5 MG, 1X/DAY
     Route: 048
     Dates: start: 20100610
  6. ENALAPRIL MALEATE [Concomitant]
     Indication: CARDIAC FAILURE

REACTIONS (1)
  - CARDIOACTIVE DRUG LEVEL INCREASED [None]
